FAERS Safety Report 23203523 (Version 2)
Quarter: 2024Q1

REPORT INFORMATION
  Report Type: Spontaneous
  Country: TW (occurrence: TW)
  Receive Date: 20231120
  Receipt Date: 20240103
  Transmission Date: 20240409
  Serious: Yes (Hospitalization, Other)
  Sender: FDA-Public Use
  Company Number: TW-JNJFOC-20231151667

PATIENT
  Sex: Female

DRUGS (3)
  1. TRABECTEDIN [Suspect]
     Active Substance: TRABECTEDIN
     Indication: Sarcoma
     Dosage: CYCLE 5
     Route: 042
     Dates: start: 20231021
  2. TRABECTEDIN [Suspect]
     Active Substance: TRABECTEDIN
     Route: 042
     Dates: start: 20231207
  3. DOXORUBICIN [Concomitant]
     Active Substance: DOXORUBICIN
     Indication: Sarcoma
     Route: 042

REACTIONS (1)
  - Febrile neutropenia [Unknown]

NARRATIVE: CASE EVENT DATE: 20231102
